FAERS Safety Report 6181166-2 (Version None)
Quarter: 2009Q2

REPORT INFORMATION
  Report Type: 
  Country: None (occurrence: None)
  Receive Date: 20090501
  Receipt Date: 20090211
  Transmission Date: 20091009
  Serious: No
  Sender: FDA-Public Use
  Company Number: 2009001030

PATIENT
  Sex: Male

DRUGS (1)
  1. TREANDA [Suspect]
     Indication: B-CELL SMALL LYMPHOCYTIC LYMPHOMA
     Dosage: 5.7143 MG/M2 (120 MG/M2, 1 IN 3 WK), INTRAVENOUS
     Route: 042

REACTIONS (1)
  - NEUTROPENIA [None]
